FAERS Safety Report 17402783 (Version 3)
Quarter: 2022Q1

REPORT INFORMATION
  Report Type: Spontaneous
  Country: US (occurrence: US)
  Receive Date: 20200211
  Receipt Date: 20220325
  Transmission Date: 20220423
  Serious: Yes (Other)
  Sender: FDA-Public Use
  Company Number: US-PFIZER INC-2020053606

PATIENT
  Age: 69 Year
  Sex: Female

DRUGS (1)
  1. XELJANZ [Suspect]
     Active Substance: TOFACITINIB CITRATE
     Dosage: 5 MG

REACTIONS (8)
  - Pneumonia [Unknown]
  - Immunosuppression [Unknown]
  - COVID-19 [Unknown]
  - Illness [Unknown]
  - Gait disturbance [Unknown]
  - Influenza [Unknown]
  - Bronchitis [Unknown]
  - Feeling abnormal [Unknown]
